FAERS Safety Report 4912815-1 (Version None)
Quarter: 2006Q1

REPORT INFORMATION
  Report Type: 
  Country: None (occurrence: None)
  Receive Date: 20060215
  Receipt Date: 20060206
  Transmission Date: 20060701
  Serious: Yes (Other)
  Sender: FDA-Public Use
  Company Number: PHFR2006GB00773

PATIENT
  Age: 66 Year
  Sex: Female
  Weight: 64 kg

DRUGS (3)
  1. DICLOFENAC [Suspect]
     Indication: POSTOPERATIVE ANALGESIA
  2. ASPIRIN [Concomitant]
     Dosage: 75 MG/DAY
     Route: 048
  3. NUROFEN [Concomitant]
     Dosage: 400 MG/DAY
     Route: 048
     Dates: start: 20060107, end: 20060107

REACTIONS (3)
  - EYELID OEDEMA [None]
  - PRURITUS [None]
  - RASH ERYTHEMATOUS [None]
